FAERS Safety Report 7070039-9 (Version None)
Quarter: 2010Q4

REPORT INFORMATION
  Report Type: 
  Country: None (occurrence: None)
  Receive Date: 20101028
  Receipt Date: 20100823
  Transmission Date: 20110411
  Serious: No
  Sender: FDA-Public Use
  Company Number: US-WYE-H17115810

PATIENT
  Sex: Female

DRUGS (2)
  1. EFFEXOR [Suspect]
     Dosage: 75 MG IN THE EVENING
     Route: 048
  2. VENLAFAXINE HYDROCHLORIDE [Suspect]
     Dosage: 150 MG IN THE MORNING
     Route: 048
     Dates: start: 20100809

REACTIONS (6)
  - HYPERHIDROSIS [None]
  - MUSCLE TWITCHING [None]
  - NAUSEA [None]
  - PANIC ATTACK [None]
  - RHINORRHOEA [None]
  - TREMOR [None]
